FAERS Safety Report 10950911 (Version 1)
Quarter: 2015Q1

REPORT INFORMATION
  Report Type: Spontaneous
  Country: US (occurrence: US)
  Receive Date: 20150324
  Receipt Date: 20150324
  Transmission Date: 20150721
  Serious: Yes (Hospitalization, Other)
  Sender: FDA-Public Use
  Company Number: US-JNJFOC-20150309289

PATIENT
  Sex: Male
  Weight: 88.91 kg

DRUGS (2)
  1. TYLENOL WITH CODEINE [Suspect]
     Active Substance: ACETAMINOPHEN\CODEINE PHOSPHATE
     Indication: PAIN
     Route: 048
     Dates: start: 1981
  2. TYLENOL WITH CODEINE [Suspect]
     Active Substance: ACETAMINOPHEN\CODEINE PHOSPHATE
     Indication: ACCIDENT
     Route: 048
     Dates: start: 1981

REACTIONS (5)
  - Incorrect dose administered [Unknown]
  - Fall [Unknown]
  - Hypokinesia [Unknown]
  - Body height decreased [Unknown]
  - Myocardial infarction [Unknown]
